FAERS Safety Report 20579336 (Version 1)
Quarter: 2022Q1

REPORT INFORMATION
  Report Type: Spontaneous
  Country: CN (occurrence: CN)
  Receive Date: 20220310
  Receipt Date: 20220310
  Transmission Date: 20220423
  Serious: Yes (Other)
  Sender: FDA-Public Use
  Company Number: CN-PFIZER INC-202200342486

PATIENT
  Sex: Male
  Weight: 85.8 kg

DRUGS (1)
  1. MEDROL [Suspect]
     Active Substance: METHYLPREDNISOLONE
     Indication: Hormone therapy
     Dosage: 15 DF, 1X/DAY
     Route: 048
     Dates: start: 20220208, end: 20220221

REACTIONS (12)
  - Blood glucose decreased [Not Recovered/Not Resolved]
  - Blood potassium decreased [Recovering/Resolving]
  - White blood cell count increased [Not Recovered/Not Resolved]
  - Neutrophil percentage increased [Unknown]
  - Neutrophil count increased [Unknown]
  - Lymphocyte percentage decreased [Unknown]
  - Eosinophil percentage decreased [Unknown]
  - Monocyte count increased [Unknown]
  - Red cell distribution width decreased [Unknown]
  - Protein total decreased [Unknown]
  - Blood creatine phosphokinase decreased [Unknown]
  - Blood creatine phosphokinase MB increased [Unknown]

NARRATIVE: CASE EVENT DATE: 20220217
